FAERS Safety Report 17815937 (Version 1)
Quarter: 2020Q2

REPORT INFORMATION
  Report Type: Spontaneous
  Country: US (occurrence: US)
  Receive Date: 20200522
  Receipt Date: 20200522
  Transmission Date: 20200714
  Serious: Yes (Hospitalization)
  Sender: FDA-Public Use
  Company Number: None

PATIENT
  Age: 66 Year
  Sex: Female
  Weight: 88 kg

DRUGS (1)
  1. ASPIRIN (27223) [Suspect]
     Active Substance: ASPIRIN
     Indication: DRUG THERAPY
     Dates: end: 20200520

REACTIONS (11)
  - Cough [None]
  - Bone lesion [None]
  - Peripheral swelling [None]
  - Breast induration [None]
  - Atelectasis [None]
  - Pleural effusion [None]
  - Induration [None]
  - Pneumothorax [None]
  - Dyspnoea [None]
  - Swelling [None]
  - Sputum decreased [None]

NARRATIVE: CASE EVENT DATE: 20200509
